FAERS Safety Report 18136137 (Version 5)
Quarter: 2024Q3

REPORT INFORMATION
  Report Type: Spontaneous
  Country: US (occurrence: US)
  Receive Date: 20200811
  Receipt Date: 20240710
  Transmission Date: 20241016
  Serious: No
  Sender: PFIZER
  Company Number: US-PFIZER INC-2020305214

PATIENT
  Age: 63 Year
  Sex: Female

DRUGS (7)
  1. XELJANZ XR [Suspect]
     Active Substance: TOFACITINIB CITRATE
     Dosage: 11 MG
     Dates: start: 20190919
  2. TYLENOL [Concomitant]
     Active Substance: ACETAMINOPHEN
  3. PREGABALIN [Concomitant]
     Active Substance: PREGABALIN
  4. ALENDRONATE [Concomitant]
     Active Substance: ALENDRONATE SODIUM
  5. ATORVASTATIN [Concomitant]
     Active Substance: ATORVASTATIN
  6. HYDROXYCHLOROQUINE [Concomitant]
     Active Substance: HYDROXYCHLOROQUINE
  7. CALCIUM MAGNESIUM ZINC VITAMIN D3 [Concomitant]

REACTIONS (5)
  - Wheezing [Unknown]
  - Blood cholesterol increased [Unknown]
  - Hypersensitivity [Unknown]
  - Ear pain [Unknown]
  - Onychomycosis [Unknown]
